FAERS Safety Report 9142445 (Version 3)
Quarter: 2013Q2

REPORT INFORMATION
  Report Type: Spontaneous
  Country: US (occurrence: US)
  Receive Date: 20130306
  Receipt Date: 20130627
  Transmission Date: 20140414
  Serious: No
  Sender: FDA-Public Use
  Company Number: US-BIOGENIDEC-2013BI019002

PATIENT
  Age: 27 Year
  Sex: Female

DRUGS (1)
  1. TYSABRI [Suspect]
     Indication: MULTIPLE SCLEROSIS
     Route: 042
     Dates: start: 20130204

REACTIONS (8)
  - Hypersomnia [Recovered/Resolved]
  - Hypoaesthesia [Not Recovered/Not Resolved]
  - VIIth nerve paralysis [Not Recovered/Not Resolved]
  - Pain [Recovered/Resolved]
  - Mobility decreased [Recovered/Resolved]
  - Sluggishness [Recovered/Resolved]
  - Fatigue [Recovered/Resolved]
  - Arthralgia [Not Recovered/Not Resolved]
